FAERS Safety Report 5614621-1 (Version None)
Quarter: 2008Q1

REPORT INFORMATION
  Report Type: 
  Country: None (occurrence: None)
  Receive Date: 20080131
  Receipt Date: 20080115
  Transmission Date: 20080703
  Serious: No
  Sender: FDA-Public Use
  Company Number: 8029145

PATIENT
  Age: 58 Year
  Sex: Female

DRUGS (13)
  1. KEPPRA [Suspect]
     Dosage: 4500 MG D PO
     Route: 048
  2. KEPPRA [Suspect]
     Dosage: 2500 MG D PO
     Route: 048
  3. KEPPRA [Suspect]
     Dosage: 4500 MG D PO
     Route: 048
     Dates: start: 20071201, end: 20080107
  4. KEPPRA [Suspect]
     Dosage: 2500 MG D PO
     Route: 048
     Dates: start: 20080108
  5. ALPRAZOLAM [Concomitant]
  6. HYDROCODONE BITARTRATE [Concomitant]
  7. OXYCODONE HCL [Concomitant]
  8. ADVAIR DISKUS 100/50 [Concomitant]
  9. PROMETHAZINE [Concomitant]
  10. ALBUTEROL [Concomitant]
  11. CYCLOBENZAPRINE HCL [Concomitant]
  12. ASMANEX TWISTHALER [Concomitant]
  13. CANTIL [Concomitant]

REACTIONS (4)
  - APHASIA [None]
  - FATIGUE [None]
  - INCORRECT DOSE ADMINISTERED [None]
  - THOUGHT BLOCKING [None]
